FAERS Safety Report 21963457 (Version 2)
Quarter: 2023Q1

REPORT INFORMATION
  Report Type: Spontaneous
  Country: CA (occurrence: CA)
  Receive Date: 20230207
  Receipt Date: 20230215
  Transmission Date: 20230417
  Serious: Yes (Death)
  Sender: FDA-Public Use
  Company Number: CA-IGSA-BIG0022051

PATIENT
  Age: 77 Year
  Sex: Male
  Weight: 68 kg

DRUGS (3)
  1. IGIVNEX [Suspect]
     Active Substance: HUMAN IMMUNOGLOBULIN G
     Indication: Immunodeficiency
     Dosage: 40 GRAM, TOTAL
     Dates: start: 20221002, end: 20221002
  2. TYLENOL [Concomitant]
     Active Substance: ACETAMINOPHEN
     Dosage: 1 GRAM, QID
  3. ADVIL [Concomitant]
     Active Substance: IBUPROFEN
     Dosage: 400 MILLIGRAM

REACTIONS (9)
  - Transfusion-related acute lung injury [Fatal]
  - Lung infiltration [Fatal]
  - Tachypnoea [Fatal]
  - Hypoxia [Fatal]
  - Body temperature increased [Fatal]
  - Chills [Fatal]
  - Heart rate increased [Fatal]
  - Anaphylactic shock [Fatal]
  - Transfusion-related circulatory overload [Fatal]

NARRATIVE: CASE EVENT DATE: 20221002
